FAERS Safety Report 17914694 (Version 1)
Quarter: 2020Q2

REPORT INFORMATION
  Report Type: Report from Study
  Country: CA (occurrence: CA)
  Receive Date: 20200618
  Receipt Date: 20200618
  Transmission Date: 20200714
  Serious: Yes (Other)
  Sender: FDA-Public Use
  Company Number: NVSC2020CA168631

PATIENT
  Age: 66 Year
  Sex: Female

DRUGS (1)
  1. SANDOSTATIN LAR DEPOT [Suspect]
     Active Substance: OCTREOTIDE ACETATE
     Indication: CARCINOID TUMOUR
     Dosage: 20 MG, QMO
     Route: 030
     Dates: start: 20200602

REACTIONS (5)
  - Agitation [Unknown]
  - Chills [Unknown]
  - Serotonin syndrome [Unknown]
  - Anxiety [Unknown]
  - Nasopharyngitis [Unknown]

NARRATIVE: CASE EVENT DATE: 202006
